FAERS Safety Report 14386548 (Version 2)
Quarter: 2020Q3

REPORT INFORMATION
  Report Type: Spontaneous
  Country: US (occurrence: US)
  Receive Date: 20180115
  Receipt Date: 20200929
  Transmission Date: 20201102
  Serious: Yes (Other)
  Sender: FDA-Public Use
  Company Number: US-SA-2017SA150810

PATIENT

DRUGS (9)
  1. ALOXI [Concomitant]
     Active Substance: PALONOSETRON HYDROCHLORIDE
  2. METOCLOPRAMIDE. [Concomitant]
     Active Substance: METOCLOPRAMIDE
  3. TAXOTERE [Suspect]
     Active Substance: DOCETAXEL
     Dosage: UNK UNK,Q3W
     Dates: start: 20131227, end: 20131227
  4. CYTOXAN [Concomitant]
     Active Substance: CYCLOPHOSPHAMIDE
     Indication: BREAST CANCER FEMALE
  5. DIPHENHYDRAMINE. [Concomitant]
     Active Substance: DIPHENHYDRAMINE
  6. DEXAMETHASONE. [Concomitant]
     Active Substance: DEXAMETHASONE
  7. TAXOTERE [Suspect]
     Active Substance: DOCETAXEL
     Indication: BREAST CANCER FEMALE
     Dosage: UNK UNK,Q3W
     Dates: start: 20131025, end: 20131025
  8. FAMOTIDINE. [Concomitant]
     Active Substance: FAMOTIDINE
  9. NEULASTA [Concomitant]
     Active Substance: PEGFILGRASTIM

REACTIONS (6)
  - Alopecia [Not Recovered/Not Resolved]
  - Emotional distress [Unknown]
  - Anxiety [Unknown]
  - Pain [Unknown]
  - Impaired quality of life [Unknown]
  - Psychological trauma [Unknown]

NARRATIVE: CASE EVENT DATE: 201311
